FAERS Safety Report 7549597-3 (Version None)
Quarter: 2011Q2

REPORT INFORMATION
  Report Type: 
  Country: None (occurrence: None)
  Receive Date: 20110615
  Receipt Date: 20100921
  Transmission Date: 20111010
  Serious: Yes (Hospitalization)
  Sender: FDA-Public Use
  Company Number: B0623853A

PATIENT
  Sex: Female
  Weight: 41 kg

DRUGS (12)
  1. MUCODYNE [Concomitant]
     Route: 048
     Dates: start: 20091218
  2. TYKERB [Suspect]
     Indication: BREAST CANCER
     Dosage: 1250MG PER DAY
     Route: 048
     Dates: start: 20091218, end: 20100104
  3. HIRUDOID [Concomitant]
     Route: 061
     Dates: start: 20091218, end: 20100228
  4. MYSER [Concomitant]
     Route: 061
     Dates: start: 20091218, end: 20100228
  5. AMOBAN [Concomitant]
     Indication: INSOMNIA
     Route: 048
     Dates: start: 20091218
  6. NAUZELIN [Concomitant]
     Indication: NAUSEA
     Route: 048
     Dates: start: 20091218
  7. FAMOTIDINE [Concomitant]
     Indication: NAUSEA
     Route: 048
     Dates: start: 20091218
  8. FERROUS CITRATE [Concomitant]
     Route: 048
     Dates: start: 20091218, end: 20100103
  9. TYKERB [Suspect]
     Dosage: 1250MG PER DAY
     Route: 048
     Dates: start: 20100219
  10. ALLEGRA [Concomitant]
     Indication: RHINITIS
     Route: 048
     Dates: start: 20091218
  11. XELODA [Suspect]
     Indication: BREAST CANCER
     Dosage: 4800MG PER DAY
     Route: 048
     Dates: start: 20091218, end: 20100104
  12. PYDOXAL [Concomitant]
     Route: 048
     Dates: start: 20091218, end: 20100202

REACTIONS (6)
  - DIARRHOEA [None]
  - HAEMOGLOBIN DECREASED [None]
  - PANCYTOPENIA [None]
  - WHITE BLOOD CELL COUNT DECREASED [None]
  - MALAISE [None]
  - PLATELET COUNT DECREASED [None]
